FAERS Safety Report 4814959-1 (Version None)
Quarter: 2005Q4

REPORT INFORMATION
  Report Type: 
  Country: None (occurrence: None)
  Receive Date: 20051028
  Receipt Date: 20051025
  Transmission Date: 20060501
  Serious: Yes (Other)
  Sender: FDA-Public Use
  Company Number: US-JNJFOC-20041207194

PATIENT
  Sex: Female
  Weight: 77.11 kg

DRUGS (12)
  1. ELMIRON [Suspect]
     Indication: CYSTITIS INTERSTITIAL
     Route: 048
  2. HEADACHE MEDICATION [Concomitant]
  3. PRENATAL VITAMINS [Concomitant]
     Route: 048
  4. PRENATAL VITAMINS [Concomitant]
     Route: 048
  5. PRENATAL VITAMINS [Concomitant]
     Route: 048
  6. PRENATAL VITAMINS [Concomitant]
     Route: 048
  7. PRENATAL VITAMINS [Concomitant]
     Route: 048
  8. PRENATAL VITAMINS [Concomitant]
     Route: 048
  9. PRENATAL VITAMINS [Concomitant]
     Route: 048
  10. PRENATAL VITAMINS [Concomitant]
     Indication: PREGNANCY
     Route: 048
  11. TYLENOL (CAPLET) [Concomitant]
     Route: 048
  12. TYLENOL (CAPLET) [Concomitant]
     Route: 048

REACTIONS (3)
  - CAESAREAN SECTION [None]
  - DRUG EXPOSURE DURING PREGNANCY [None]
  - PRE-ECLAMPSIA [None]
